FAERS Safety Report 10085983 (Version 1)
Quarter: 2014Q2

REPORT INFORMATION
  Report Type: Spontaneous
  Country: IT (occurrence: IT)
  Receive Date: 20140418
  Receipt Date: 20140418
  Transmission Date: 20141212
  Serious: Yes (Other)
  Sender: FDA-Public Use
  Company Number: IT-CELGENEUS-083-20785-14041429

PATIENT
  Sex: Male

DRUGS (3)
  1. THALIDOMIDE CELGENE [Suspect]
     Indication: PLASMA CELL MYELOMA
     Dosage: 100 MILLIGRAM
     Route: 048
  2. PREDNISOLONE [Concomitant]
     Indication: PLASMA CELL MYELOMA
     Dosage: 60 MILLIGRAM/SQ. METER
     Route: 065
  3. MELPHALAN [Concomitant]
     Indication: PLASMA CELL MYELOMA
     Dosage: 7.5 MILLIGRAM/SQ. METER
     Route: 065

REACTIONS (1)
  - Autoimmune haemolytic anaemia [Unknown]
